FAERS Safety Report 16793304 (Version 1)
Quarter: 2019Q3

REPORT INFORMATION
  Report Type: Report from Study
  Country: US (occurrence: US)
  Receive Date: 20190911
  Receipt Date: 20190911
  Transmission Date: 20191005
  Serious: Yes (Death, Hospitalization)
  Sender: FDA-Public Use
  Company Number: US-ROCHE-2401447

PATIENT
  Sex: Female

DRUGS (1)
  1. ACTEMRA [Suspect]
     Active Substance: TOCILIZUMAB
     Indication: IRIDOCYCLITIS
     Dosage: INFUSE 360MG INTRAVENOUSLY EVERY 4 WEEK(S)
     Route: 042

REACTIONS (1)
  - Death [Fatal]
